FAERS Safety Report 11101949 (Version 1)
Quarter: 2015Q2

REPORT INFORMATION
  Report Type: Spontaneous
  Country: US (occurrence: US)
  Receive Date: 20150510
  Receipt Date: 20150510
  Transmission Date: 20150821
  Serious: Yes (Hospitalization, Congenital Anomaly, Other)
  Sender: FDA-Public Use
  Company Number: US-APOTEX-2015AP007900

PATIENT
  Sex: Male

DRUGS (4)
  1. PAXIL [Suspect]
     Active Substance: PAROXETINE HYDROCHLORIDE
     Indication: DEPRESSION
     Dosage: 10 MG, DAILY
     Route: 064
  2. PRENATAL VITAMINS                  /07426201/ [Concomitant]
     Active Substance: ASCORBIC ACID\BIOTIN\MINERALS\NIACIN\RETINOL\TOCOPHEROL\VITAMIN B\VITAMIN D
     Dosage: 10 MG, DAILY
     Route: 064
  3. PAXIL [Suspect]
     Active Substance: PAROXETINE HYDROCHLORIDE
     Indication: ANXIETY
     Route: 064
  4. PRENATAL VITAMINS                  /07426201/ [Concomitant]
     Active Substance: ASCORBIC ACID\BIOTIN\MINERALS\NIACIN\RETINOL\TOCOPHEROL\VITAMIN B\VITAMIN D
     Indication: PRODUCT USED FOR UNKNOWN INDICATION
     Dosage: UNK
     Route: 064
     Dates: end: 2005

REACTIONS (6)
  - Patent ductus arteriosus [Unknown]
  - Tachyarrhythmia [Unknown]
  - Rhabdomyoma [Unknown]
  - Foetal exposure during pregnancy [Unknown]
  - Wolff-Parkinson-White syndrome [Unknown]
  - Intracardiac mass [Unknown]
